FAERS Safety Report 6234702-1 (Version None)
Quarter: 2009Q2

REPORT INFORMATION
  Report Type: 
  Country: None (occurrence: None)
  Receive Date: 20090616
  Receipt Date: 20090616
  Transmission Date: 20091009
  Serious: No
  Sender: FDA-Public Use
  Company Number: None

PATIENT
  Sex: Male
  Weight: 136.0791 kg

DRUGS (1)
  1. LEVAQUIN [Suspect]
     Indication: BRONCHITIS
     Dosage: 1 TIME DAILY PO
     Route: 048
     Dates: start: 20060523, end: 20060529

REACTIONS (4)
  - BALANCE DISORDER [None]
  - INNER EAR DISORDER [None]
  - SWELLING [None]
  - VESTIBULAR NEURONITIS [None]
